FAERS Safety Report 9701166 (Version 1)
Quarter: 2013Q4

REPORT INFORMATION
  Report Type: Spontaneous
  Country: US (occurrence: US)
  Receive Date: 20131121
  Receipt Date: 20131121
  Transmission Date: 20140711
  Serious: No
  Sender: FDA-Public Use
  Company Number: US-GILEAD-2008-0015846

PATIENT
  Sex: Male
  Weight: 109.77 kg

DRUGS (9)
  1. LETAIRIS [Suspect]
     Indication: PULMONARY ARTERIAL HYPERTENSION
     Route: 048
     Dates: start: 20080222
  2. COZAAR [Concomitant]
     Dosage: UD
     Route: 048
  3. TRIAMTERENE [Concomitant]
     Dosage: UD
     Route: 048
  4. COUMADIN [Concomitant]
     Dosage: UD
     Route: 048
  5. ATENOLOL [Concomitant]
     Dosage: UD
     Route: 048
  6. LIPITOR [Concomitant]
     Dosage: UD
     Route: 048
  7. METFORMIN ER [Concomitant]
     Dosage: UD
     Route: 048
  8. LEVOTHYROXINE [Concomitant]
     Dosage: UD
     Route: 048
  9. TYLENOL EX-STRENGTH [Concomitant]
     Dosage: UD
     Route: 048

REACTIONS (2)
  - Local swelling [Unknown]
  - Headache [Unknown]
